FAERS Safety Report 6810809-2 (Version None)
Quarter: 2010Q2

REPORT INFORMATION
  Report Type: 
  Country: None (occurrence: None)
  Receive Date: 20100630
  Receipt Date: 20080702
  Transmission Date: 20101027
  Serious: No
  Sender: FDA-Public Use
  Company Number: US-PFIZER INC-2008055167

PATIENT
  Sex: Female
  Weight: 70.909 kg

DRUGS (2)
  1. ESTRING [Suspect]
     Indication: DYSPAREUNIA
     Dates: start: 20080430, end: 20080630
  2. XANAX [Concomitant]
     Indication: ANXIETY

REACTIONS (2)
  - MUSCLE SPASMS [None]
  - VAGINAL HAEMORRHAGE [None]
